FAERS Safety Report 10528153 (Version 1)
Quarter: 2014Q4

REPORT INFORMATION
  Report Type: Spontaneous
  Country: US (occurrence: None)
  Receive Date: 20141017
  Receipt Date: 20141017
  Transmission Date: 20150528
  Serious: Yes (Other)
  Sender: FDA-Public Use
  Company Number: None

PATIENT
  Age: 38 Year
  Sex: Female

DRUGS (1)
  1. EQUATE COOL AND HEAT EXTRA STRENGTH [Suspect]
     Active Substance: MENTHOL
     Indication: NECK PAIN
     Dates: start: 20141015

REACTIONS (1)
  - Application site burn [None]

NARRATIVE: CASE EVENT DATE: 20141016
